FAERS Safety Report 21731999 (Version 1)
Quarter: 2022Q4

REPORT INFORMATION
  Report Type: Spontaneous
  Country: US (occurrence: US)
  Receive Date: 20221215
  Receipt Date: 20221215
  Transmission Date: 20230113
  Serious: Yes (Other)
  Sender: FDA-Public Use
  Company Number: US-GLAND PHARMA LIMITED-2022US005225

PATIENT
  Age: 16 Year
  Sex: Male
  Weight: 88 kg

DRUGS (26)
  1. DEXMEDETOMIDINE HYDROCHLORIDE [Suspect]
     Active Substance: DEXMEDETOMIDINE HYDROCHLORIDE
     Indication: Anaesthesia
     Dosage: 32 UG
     Route: 042
  2. DEXMEDETOMIDINE HYDROCHLORIDE [Suspect]
     Active Substance: DEXMEDETOMIDINE HYDROCHLORIDE
     Dosage: 0.3 MCG/KG/H
     Route: 042
  3. DEXMEDETOMIDINE HYDROCHLORIDE [Suspect]
     Active Substance: DEXMEDETOMIDINE HYDROCHLORIDE
     Dosage: 0.3 MCG/KG/H
     Route: 065
  4. DEXMEDETOMIDINE HYDROCHLORIDE [Suspect]
     Active Substance: DEXMEDETOMIDINE HYDROCHLORIDE
     Dosage: 0.2 MCG/KG/H
     Route: 065
  5. MIDAZOLAM [Suspect]
     Active Substance: MIDAZOLAM
     Indication: Anaesthesia
     Dosage: 2 MG
     Route: 065
  6. ROCURONIUM BROMIDE [Suspect]
     Active Substance: ROCURONIUM BROMIDE
     Indication: Anaesthesia
     Dosage: 50 MG
     Route: 065
  7. ROCURONIUM BROMIDE [Suspect]
     Active Substance: ROCURONIUM BROMIDE
     Dosage: 70 MG
     Route: 065
  8. PROPOFOL [Suspect]
     Active Substance: PROPOFOL
     Indication: Anaesthesia
     Dosage: 150-175 MCG/KG/MIN
     Route: 065
  9. PROPOFOL [Suspect]
     Active Substance: PROPOFOL
     Dosage: 150-175 MCG/KG/MIN
     Route: 065
  10. PROPOFOL [Suspect]
     Active Substance: PROPOFOL
     Dosage: 150 MCG/KG/MIN
     Route: 065
  11. PROPOFOL [Suspect]
     Active Substance: PROPOFOL
     Dosage: 150 MCG/KG/MIN
     Route: 065
  12. PROPOFOL [Suspect]
     Active Substance: PROPOFOL
     Dosage: 150 MCG/KG/MIN
     Route: 065
  13. SEVOFLURANE [Suspect]
     Active Substance: SEVOFLURANE
     Indication: Anaesthesia
     Dosage: 0.2-0.6
     Route: 065
  14. SEVOFLURANE [Suspect]
     Active Substance: SEVOFLURANE
     Dosage: 0.4-0.5
     Route: 065
  15. SEVOFLURANE [Suspect]
     Active Substance: SEVOFLURANE
     Dosage: 0.2-0.3
     Route: 065
  16. SEVOFLURANE [Suspect]
     Active Substance: SEVOFLURANE
     Dosage: 0.1 UNK
     Route: 065
  17. SEVOFLURANE [Suspect]
     Active Substance: SEVOFLURANE
     Dosage: 0.3-0.5
     Route: 065
  18. REMIFENTANIL [Suspect]
     Active Substance: REMIFENTANIL
     Indication: Anaesthesia
     Dosage: 0.2 MC/KG/H
     Route: 065
  19. REMIFENTANIL [Suspect]
     Active Substance: REMIFENTANIL
     Dosage: 0.25-0.3 MC/KG/H
     Route: 065
  20. REMIFENTANIL [Suspect]
     Active Substance: REMIFENTANIL
     Dosage: 0.3 MC/KG/H
     Route: 065
  21. REMIFENTANIL [Suspect]
     Active Substance: REMIFENTANIL
     Dosage: 0.3 MC/KG/H
     Route: 065
  22. REMIFENTANIL [Suspect]
     Active Substance: REMIFENTANIL
     Dosage: 0.3 MC/KG/H
     Route: 065
  23. REMIFENTANIL [Suspect]
     Active Substance: REMIFENTANIL
     Dosage: 0.3 MC/KG/H
     Route: 065
  24. FENTANYL [Suspect]
     Active Substance: FENTANYL
     Indication: Anaesthesia
     Dosage: 50 UG
     Route: 065
  25. FENTANYL [Suspect]
     Active Substance: FENTANYL
     Dosage: 50 UG
     Route: 065
  26. LIDOCAINE [Suspect]
     Active Substance: LIDOCAINE
     Indication: Anaesthesia
     Dosage: 100 MG
     Route: 065

REACTIONS (1)
  - Diabetes insipidus [Recovering/Resolving]
